FAERS Safety Report 16050948 (Version 1)
Quarter: 2019Q1

REPORT INFORMATION
  Report Type: Spontaneous
  Country: US (occurrence: US)
  Receive Date: 20190308
  Receipt Date: 20190308
  Transmission Date: 20190418
  Serious: No
  Sender: FDA-Public Use
  Company Number: US-TEVA-2019-US-1010668

PATIENT
  Sex: Female

DRUGS (1)
  1. BUPROPION HYDROCHLORIDE EXTENDED-RELEASE TABLETS [Suspect]
     Active Substance: BUPROPION HYDROCHLORIDE
     Dosage: DOSE STRENGTH:  150
     Route: 065
     Dates: start: 2015

REACTIONS (1)
  - Drug hypersensitivity [Unknown]

NARRATIVE: CASE EVENT DATE: 2015
